FAERS Safety Report 21627365 (Version 1)
Quarter: 2022Q4

REPORT INFORMATION
  Report Type: Report from Study
  Country: US (occurrence: US)
  Receive Date: 20221122
  Receipt Date: 20221122
  Transmission Date: 20230113
  Serious: No
  Sender: FDA-Public Use
  Company Number: US-ABBVIE-22K-163-4461211-00

PATIENT
  Age: 31 Year
  Sex: Female

DRUGS (4)
  1. HUMIRA [Suspect]
     Active Substance: ADALIMUMAB
     Indication: Hidradenitis
     Dosage: DAY 1?2 PEN
     Route: 058
     Dates: start: 20210910, end: 20210910
  2. HUMIRA [Suspect]
     Active Substance: ADALIMUMAB
     Route: 058
  3. HUMIRA [Suspect]
     Active Substance: ADALIMUMAB
     Dosage: DAY 15?1 PEN
     Route: 058
     Dates: start: 20210924, end: 20210924
  4. HUMIRA [Suspect]
     Active Substance: ADALIMUMAB
     Dosage: DAY 29
     Route: 058
     Dates: start: 20210910

REACTIONS (4)
  - COVID-19 [Unknown]
  - Weight increased [Unknown]
  - Hypothyroidism [Unknown]
  - Hidradenitis [Unknown]

NARRATIVE: CASE EVENT DATE: 20220821
